FAERS Safety Report 8561756-X (Version None)
Quarter: 2012Q3

REPORT INFORMATION
  Report Type: 
  Country: None (occurrence: None)
  Receive Date: 20120802
  Receipt Date: 20120724
  Transmission Date: 20120928
  Serious: No
  Sender: FDA-Public Use
  Company Number: US-ASTRAZENECA-2012SE43346

PATIENT
  Age: 54 Year
  Sex: Female
  Weight: 67.6 kg

DRUGS (2)
  1. SEROQUEL [Suspect]
     Indication: SLEEP DISORDER
     Route: 048
  2. NEXIUM [Suspect]
     Route: 048

REACTIONS (6)
  - INTENTIONAL DRUG MISUSE [None]
  - ABDOMINAL PAIN UPPER [None]
  - OFF LABEL USE [None]
  - GASTRITIS [None]
  - HYPERCHLORHYDRIA [None]
  - VOMITING [None]
